FAERS Safety Report 23467827 (Version 1)
Quarter: 2024Q1

REPORT INFORMATION
  Report Type: Spontaneous
  Country: FR (occurrence: FR)
  Receive Date: 20240201
  Receipt Date: 20240201
  Transmission Date: 20240410
  Serious: Yes (Hospitalization)
  Sender: FDA-Public Use
  Company Number: None

PATIENT
  Age: 58 Year
  Sex: Female
  Weight: 51 kg

DRUGS (13)
  1. PEMETREXED [Suspect]
     Active Substance: PEMETREXED
     Indication: Bronchial carcinoma
     Route: 042
     Dates: start: 20230510, end: 20231003
  2. KEYTRUDA [Suspect]
     Active Substance: PEMBROLIZUMAB
     Indication: Bronchial carcinoma
     Dosage: 200 MG?INTRAVENOUS ?ROA-20045000
     Dates: start: 20230510, end: 20231003
  3. VENLAFAXINE [Concomitant]
     Active Substance: VENLAFAXINE HYDROCHLORIDE
     Indication: Product used for unknown indication
     Dosage: 225 MG?ORAL?ROA-20053000
  4. SPECIAFOLDINE 0,4 mg, tablet [Concomitant]
     Indication: Product used for unknown indication
     Dosage: 1 DOSAGE FORM?ORAL?ROA-20053000
  5. QUITAXON 10 mg, scored coated tablet [Concomitant]
     Indication: Product used for unknown indication
     Dosage: 1 DOSAGE FORM?ORAL?ROA-20053000
     Dates: end: 20231023
  6. OXYCODONE HYDROCHLORIDE [Concomitant]
     Active Substance: OXYCODONE HYDROCHLORIDE
     Indication: Product used for unknown indication
     Dosage: 1 DOSAGE FORM?ORAL?ROA-20053000
  7. AMLODIPINE [Concomitant]
     Active Substance: AMLODIPINE BESYLATE
     Indication: Product used for unknown indication
     Dosage: 5 MG?ORAL?ROA-20053000
  8. FILGRASTIM [Concomitant]
     Active Substance: FILGRASTIM
     Indication: Product used for unknown indication
     Dosage: 2 DOSAGE FORM?INTRAVENOUS?ROA-20045000
  9. MINIDRIL, coated tablet [Concomitant]
     Indication: Product used for unknown indication
     Dosage: 1 DOSAGE FORM?ORAL?ROA-20053000
  10. TRANXENE 5 mg, capsule [Concomitant]
     Indication: Product used for unknown indication
     Dosage: 3 DOSAGE FORM?ORAL
  11. OXYCONTIN LP 10 mg, sustained-release film-coated tablet [Concomitant]
     Indication: Product used for unknown indication
     Dosage: 2 DOSAGE FORM?ORAL?ROA-20053000
  12. EPORATIO 20 000 UI/1 ml, solution for injection in pre-filled syringe [Concomitant]
     Indication: Product used for unknown indication
     Dosage: 1 DOSAGE FORM?INTRAVENOUS?ROA-20045000
  13. ZOPICLONE [Concomitant]
     Active Substance: ZOPICLONE
     Indication: Product used for unknown indication
     Dosage: 1 DOSAGE FORM?ORAL?ROA-20053000

REACTIONS (3)
  - Hypophysitis [Recovering/Resolving]
  - Encephalitis [Recovering/Resolving]
  - Tubulointerstitial nephritis [Recovering/Resolving]

NARRATIVE: CASE EVENT DATE: 20231023
